FAERS Safety Report 5510293-5 (Version None)
Quarter: 2007Q4

REPORT INFORMATION
  Report Type: 
  Country: None (occurrence: None)
  Receive Date: 20071108
  Receipt Date: 20071106
  Transmission Date: 20080405
  Serious: Yes (Other)
  Sender: FDA-Public Use
  Company Number: ES-JNJFOC-20071007591

PATIENT
  Age: 8 Year
  Sex: Male

DRUGS (2)
  1. RISPERIDONE [Suspect]
     Indication: ABNORMAL BEHAVIOUR
     Route: 048
  2. RUBIFEN [Suspect]
     Indication: ATTENTION DEFICIT/HYPERACTIVITY DISORDER
     Route: 048

REACTIONS (1)
  - GYNAECOMASTIA [None]
